FAERS Safety Report 4739676-8 (Version None)
Quarter: 2005Q3

REPORT INFORMATION
  Report Type: 
  Country: None (occurrence: None)
  Receive Date: 20050810
  Receipt Date: 20050425
  Transmission Date: 20060218
  Serious: No
  Sender: FDA-Public Use
  Company Number: US-GLAXOSMITHKLINE-A0555580A

PATIENT
  Sex: Male

DRUGS (9)
  1. PAXIL [Suspect]
     Indication: DRUG USE FOR UNKNOWN INDICATION
     Dosage: 10MG PER DAY
     Route: 048
     Dates: start: 20041101
  2. TEGRETOL [Concomitant]
  3. HYDROCHLOROTHIAZIDE [Concomitant]
  4. VERAPAMIL [Concomitant]
  5. KLONOPIN [Concomitant]
  6. DALMANE [Concomitant]
  7. PHENOBARBITAL [Concomitant]
  8. IBUPROFEN [Concomitant]
  9. TRAZODONE [Concomitant]

REACTIONS (1)
  - DRUG INEFFECTIVE [None]
